FAERS Safety Report 7352317-9 (Version None)
Quarter: 2011Q1

REPORT INFORMATION
  Report Type: 
  Country: None (occurrence: None)
  Receive Date: 20110315
  Receipt Date: 20110304
  Transmission Date: 20110831
  Serious: Yes (Other)
  Sender: FDA-Public Use
  Company Number: US-TEVA-270126USA

PATIENT

DRUGS (1)
  1. LISINOPRIL [Suspect]

REACTIONS (3)
  - VERTIGO [None]
  - DEAFNESS [None]
  - TINNITUS [None]
